FAERS Safety Report 5284745-X (Version None)
Quarter: 2007Q2

REPORT INFORMATION
  Report Type: 
  Country: None (occurrence: None)
  Receive Date: 20070403
  Receipt Date: 20070320
  Transmission Date: 20071010
  Serious: Yes (Other)
  Sender: FDA-Public Use
  Company Number: IT-AVENTIS-200712082GDDC

PATIENT
  Age: 17 Year
  Sex: Male

DRUGS (4)
  1. KETEK [Suspect]
     Route: 048
  2. KETEK [Suspect]
  3. METHYLENEDIOXYMETHAMPHETAMINE [Concomitant]
     Dosage: DOSE: UNK
  4. COCAINE [Concomitant]
     Dosage: DOSE: UNK

REACTIONS (1)
  - BLINDNESS [None]
